FAERS Safety Report 8602674-8 (Version None)
Quarter: 2012Q3

REPORT INFORMATION
  Report Type: 
  Country: None (occurrence: None)
  Receive Date: 20120817
  Receipt Date: 20120813
  Transmission Date: 20120928
  Serious: Yes (Other)
  Sender: FDA-Public Use
  Company Number: US-TEVA-354042USA

PATIENT
  Sex: Female

DRUGS (1)
  1. CLARAVIS [Suspect]
     Dosage: 1 BID M,W,F AND 1 QD T,R,SA,SU; QD M,W,F AND BID T,R,SA,SU
     Route: 048
     Dates: start: 20120504, end: 20120806

REACTIONS (2)
  - UNINTENDED PREGNANCY [None]
  - INCORRECT DRUG DOSAGE FORM ADMINISTERED [None]
